FAERS Safety Report 5162786-0 (Version None)
Quarter: 2006Q4

REPORT INFORMATION
  Report Type: 
  Country: None (occurrence: None)
  Receive Date: 20061201
  Receipt Date: 20061128
  Transmission Date: 20070319
  Serious: Yes (Other)
  Sender: FDA-Public Use
  Company Number: US-GLAXOSMITHKLINE-A0628951A

PATIENT
  Age: 52 Year
  Sex: Female

DRUGS (2)
  1. COMMIT [Suspect]
     Indication: SMOKING CESSATION THERAPY
     Dosage: 4MG SINGLE DOSE
     Route: 002
     Dates: start: 20061027, end: 20061027
  2. VITAMINS [Concomitant]

REACTIONS (7)
  - ANAPHYLACTIC REACTION [None]
  - DYSPNOEA [None]
  - FEELING HOT [None]
  - HICCUPS [None]
  - ORAL DISCOMFORT [None]
  - SUFFOCATION FEELING [None]
  - THROAT TIGHTNESS [None]
